FAERS Safety Report 4351763-5 (Version None)
Quarter: 2004Q2

REPORT INFORMATION
  Report Type: 
  Country: None (occurrence: None)
  Receive Date: 20040503
  Receipt Date: 20040420
  Transmission Date: 20050107
  Serious: Yes (Death)
  Sender: FDA-Public Use
  Company Number: HCM-0024

PATIENT
  Age: 83 Year
  Sex: Male

DRUGS (14)
  1. HYCAMTIN [Suspect]
     Dosage: 43MG PER DAY
     Route: 042
     Dates: start: 20030825, end: 20030926
  2. TAXOL [Suspect]
     Dosage: 180MG PER DAY
     Dates: start: 20030829, end: 20030829
  3. NIZATIDINE [Concomitant]
     Dosage: 2CAP PER DAY
     Route: 048
     Dates: start: 20030806, end: 20031015
  4. REBAMIPIDE [Concomitant]
     Dosage: 300MG PER DAY
     Route: 048
     Dates: start: 20030806, end: 20031015
  5. SULFAMETHOXAZOLE + TRIMETHOPRIM [Concomitant]
     Dosage: 2TAB PER DAY
     Route: 048
     Dates: start: 20030812, end: 20030909
  6. DIPHENHYDRAMINE HCL [Concomitant]
     Dosage: 50MG PER DAY
     Route: 048
     Dates: start: 20030829, end: 20030829
  7. GRANISETRON HYDROCHLORIDE [Concomitant]
     Route: 042
     Dates: start: 20030825, end: 20030829
  8. LACTATED RINGER'S [Concomitant]
     Dosage: 500ML PER DAY
     Route: 042
     Dates: start: 20030825, end: 20030926
  9. DEXAMETHASONE SODIUM PHOSPHATE [Concomitant]
     Dosage: 20MG PER DAY
     Route: 042
     Dates: start: 20030829, end: 20030829
  10. RANITIDINE HYDROCHLORIDE [Concomitant]
     Dosage: 20MG PER DAY
     Route: 042
     Dates: start: 20030829, end: 20030829
  11. SODIUM CHLORIDE INJ [Concomitant]
     Dosage: 20ML PER DAY
     Route: 042
     Dates: start: 20030826, end: 20030916
  12. PIPERACILLIN SODIUM [Concomitant]
     Dosage: 4G PER DAY
     Dates: start: 20030906, end: 20030912
  13. ISOTONIC SODIUM CHLORIDE SOLUTION [Concomitant]
     Dosage: 500ML PER DAY
     Route: 042
     Dates: start: 20030829, end: 20030912
  14. LENOGRASTIM [Concomitant]
     Dosage: 100MCG PER DAY
     Route: 042
     Dates: start: 20030903, end: 20030910

REACTIONS (13)
  - ALANINE AMINOTRANSFERASE INCREASED [None]
  - ASPARTATE AMINOTRANSFERASE INCREASED [None]
  - BLOOD ALKALINE PHOSPHATASE INCREASED [None]
  - BLOOD BILIRUBIN INCREASED [None]
  - BLOOD LACTATE DEHYDROGENASE INCREASED [None]
  - BLOOD UREA INCREASED [None]
  - DISEASE PROGRESSION [None]
  - GAMMA-GLUTAMYLTRANSFERASE INCREASED [None]
  - HAEMOGLOBIN DECREASED [None]
  - NEUTROPHIL COUNT DECREASED [None]
  - PLATELET COUNT DECREASED [None]
  - RED BLOOD CELL COUNT DECREASED [None]
  - WHITE BLOOD CELL COUNT DECREASED [None]
